FAERS Safety Report 5411181-5 (Version None)
Quarter: 2007Q3

REPORT INFORMATION
  Report Type: 
  Country: None (occurrence: None)
  Receive Date: 20070810
  Receipt Date: 20070807
  Transmission Date: 20080115
  Serious: Yes (Hospitalization)
  Sender: FDA-Public Use
  Company Number: A0668640A

PATIENT
  Age: 42 Year
  Sex: Male

DRUGS (1)
  1. ZOVIRAX [Suspect]
     Indication: HERPES VIRUS INFECTION
     Dosage: 200MG THREE TIMES PER DAY
     Route: 048
     Dates: start: 19970101, end: 20070701

REACTIONS (1)
  - BRAIN NEOPLASM [None]
